FAERS Safety Report 19375158 (Version 1)
Quarter: 2021Q2

REPORT INFORMATION
  Report Type: Spontaneous
  Country: GB (occurrence: GB)
  Receive Date: 20210604
  Receipt Date: 20210604
  Transmission Date: 20210717
  Serious: Yes (Other)
  Sender: FDA-Public Use
  Company Number: GB-PFIZER INC-2021575274

PATIENT
  Sex: Female

DRUGS (3)
  1. ASTRAZENECA COVID?19 VACCINE [Suspect]
     Active Substance: AZD-1222
     Dosage: DOSE 1
     Dates: start: 20210227
  2. AMOXICILLIN. [Concomitant]
     Active Substance: AMOXICILLIN
  3. DOXYCYCLINE MONOHYDRATE [Suspect]
     Active Substance: DOXYCYCLINE

REACTIONS (6)
  - Sinusitis [Recovering/Resolving]
  - Swelling face [Recovering/Resolving]
  - Acute sinusitis [Not Recovered/Not Resolved]
  - Headache [Recovering/Resolving]
  - Rhinorrhoea [Not Recovered/Not Resolved]
  - Pyrexia [Recovering/Resolving]

NARRATIVE: CASE EVENT DATE: 20210304
